FAERS Safety Report 22167370 (Version 1)
Quarter: 2023Q2

REPORT INFORMATION
  Report Type: Spontaneous
  Country: US (occurrence: US)
  Receive Date: 20230403
  Receipt Date: 20230403
  Transmission Date: 20230721
  Serious: No
  Sender: FDA-Public Use
  Company Number: US-SA-SAC20230329000619

PATIENT
  Sex: Male
  Weight: 52.16 kg

DRUGS (18)
  1. DUPIXENT [Suspect]
     Active Substance: DUPILUMAB
     Indication: Dermatitis atopic
     Dosage: 200 MG, QOW
     Route: 058
  2. CUTAQUIG [Concomitant]
     Active Substance: HUMAN IMMUNOGLOBULIN G
     Dosage: UNK
     Route: 042
  3. BAQSIMI [Concomitant]
     Active Substance: GLUCAGON
  4. DOXYCYCLINE HYCLATE [Concomitant]
     Active Substance: DOXYCYCLINE HYCLATE
  5. HYDROXYZINE HYDROCHLORIDE [Concomitant]
     Active Substance: HYDROXYZINE HYDROCHLORIDE
  6. LANTUS SOLOSTAR [Concomitant]
     Active Substance: INSULIN GLARGINE
  7. NOVOLOG [Concomitant]
     Active Substance: INSULIN ASPART
  8. SYMJEPI [Concomitant]
     Active Substance: EPINEPHRINE
  9. ZONEGRAN [Concomitant]
     Active Substance: ZONISAMIDE
  10. LACTASE [Concomitant]
     Active Substance: LACTASE
  11. LEVOTHYROXINE [Concomitant]
     Active Substance: LEVOTHYROXINE
  12. SKYTROFA [Concomitant]
     Active Substance: LONAPEGSOMATROPIN-TCGD
  13. ACETAMINOPHEN [Concomitant]
     Active Substance: ACETAMINOPHEN
  14. DIPHENHYDRAMINE [Concomitant]
     Active Substance: DIPHENHYDRAMINE
  15. EPINEPHRINE [Concomitant]
     Active Substance: EPINEPHRINE
  16. TESTOSTERONE [Concomitant]
     Active Substance: TESTOSTERONE
  17. LIDOCAINE [Concomitant]
     Active Substance: LIDOCAINE
  18. NORDITROPIN [Concomitant]
     Active Substance: SOMATROPIN

REACTIONS (1)
  - Incorrect dose administered [Unknown]
